FAERS Safety Report 19001170 (Version 3)
Quarter: 2021Q2

REPORT INFORMATION
  Report Type: Report from Study
  Country: None (occurrence: CA)
  Receive Date: 20210311
  Receipt Date: 20210413
  Transmission Date: 20210717
  Serious: Yes (Other)
  Sender: FDA-Public Use
  Company Number: CA-ABBVIE-20K-028-3681740-00

PATIENT
  Age: 51 Year
  Sex: Female

DRUGS (2)
  1. RINVOQ [Suspect]
     Active Substance: UPADACITINIB
     Indication: RHEUMATOID ARTHRITIS
     Route: 048
     Dates: start: 20201109
  2. RINVOQ [Suspect]
     Active Substance: UPADACITINIB
     Route: 048
     Dates: start: 20210406

REACTIONS (14)
  - Neck mass [Not Recovered/Not Resolved]
  - Discomfort [Unknown]
  - Drug ineffective [Not Recovered/Not Resolved]
  - Chest pain [Unknown]
  - Depression [Unknown]
  - Rash [Not Recovered/Not Resolved]
  - Limb mass [Recovering/Resolving]
  - Feeling abnormal [Unknown]
  - Pain in extremity [Not Recovered/Not Resolved]
  - Pain in extremity [Unknown]
  - Burning sensation [Recovering/Resolving]
  - Lymphadenopathy [Unknown]
  - Rheumatoid arthritis [Recovering/Resolving]
  - Asthenia [Recovering/Resolving]

NARRATIVE: CASE EVENT DATE: 202102
